FAERS Safety Report 8285528 (Version 4)
Quarter: 2013Q3

REPORT INFORMATION
  Report Type: Report from Study
  Country: BR (occurrence: BR)
  Receive Date: 20111213
  Receipt Date: 20130716
  Transmission Date: 20140515
  Serious: Yes (Hospitalization, Other)
  Sender: FDA-Public Use
  Company Number: BR-ROCHE-1020999

PATIENT
  Sex: Female
  Weight: 97 kg

DRUGS (4)
  1. ACTEMRA [Suspect]
     Indication: RHEUMATOID ARTHRITIS
     Dosage: LAST INFUSION WAS ON 12-JUL-2013
     Route: 042
     Dates: start: 20100501
  2. SIBUTRAMINE [Concomitant]
     Route: 065
  3. LIPIBLOCK [Concomitant]
     Route: 065
  4. ACETYLSALICYLIC ACID [Concomitant]

REACTIONS (2)
  - Erysipelas [Recovered/Resolved]
  - Cerebrovascular accident [Recovering/Resolving]
